FAERS Safety Report 17526215 (Version 1)
Quarter: 2020Q1

REPORT INFORMATION
  Report Type: Spontaneous
  Country: JP (occurrence: JP)
  Receive Date: 20200311
  Receipt Date: 20200311
  Transmission Date: 20200409
  Serious: Yes (Other)
  Sender: FDA-Public Use
  Company Number: JP-TEVA-2020-JP-1196740

PATIENT
  Age: 68 Year
  Sex: Female

DRUGS (6)
  1. LACTOBACILLUS PARAPLANTARUM [Suspect]
     Active Substance: LACTOBACILLUS PLANTARUM
     Indication: PROBIOTIC THERAPY
     Dosage: SHE HAD BEEN TAKING LACTOBACILLUS-PLANTARUM SINCE THE DIAGNOSIS OF PANCREATIC CANCER
     Route: 048
  2. VILDAGLIPTIN [Suspect]
     Active Substance: VILDAGLIPTIN
     Indication: DIABETES MELLITUS
     Route: 065
  3. OXALIPLATIN. [Suspect]
     Active Substance: OXALIPLATIN
     Indication: PANCREATIC CARCINOMA
     Dosage: MODIFIED FOLFIRINOX REGIMEN
     Route: 065
  4. FLUOROURACIL. [Suspect]
     Active Substance: FLUOROURACIL
     Indication: PANCREATIC CARCINOMA
     Dosage: MODIFIED FOLFIRINOX REGIMEN
     Route: 065
  5. FOLINIC ACID [Suspect]
     Active Substance: LEUCOVORIN
     Indication: PANCREATIC CARCINOMA
     Dosage: MODIFIED FOLFIRINOX REGIMEN
     Route: 065
  6. IRINOTECAN [Suspect]
     Active Substance: IRINOTECAN
     Indication: PANCREATIC CARCINOMA
     Dosage: MODIFIED FOLFIRINOX REGIMEN
     Route: 065

REACTIONS (1)
  - Interstitial lung disease [Recovered/Resolved]
